FAERS Safety Report 16577979 (Version 1)
Quarter: 2019Q3

REPORT INFORMATION
  Report Type: Spontaneous
  Country: US (occurrence: US)
  Receive Date: 20190716
  Receipt Date: 20190716
  Transmission Date: 20191004
  Serious: No
  Sender: FDA-Public Use
  Company Number: US-BAYER-2019-131100

PATIENT
  Age: 56 Year
  Sex: Female

DRUGS (1)
  1. MIRALAX [Suspect]
     Active Substance: POLYETHYLENE GLYCOL 3350
     Route: 048
     Dates: start: 201907

REACTIONS (8)
  - Product physical consistency issue [None]
  - Gastrointestinal pain [None]
  - Abdominal pain [None]
  - Abnormal faeces [None]
  - Product odour abnormal [None]
  - Nausea [Unknown]
  - Product solubility abnormal [None]
  - Product taste abnormal [None]

NARRATIVE: CASE EVENT DATE: 201907
